FAERS Safety Report 4780792-2 (Version None)
Quarter: 2005Q3

REPORT INFORMATION
  Report Type: 
  Country: None (occurrence: None)
  Receive Date: 20050927
  Receipt Date: 20050621
  Transmission Date: 20060218
  Serious: Yes (Death, Hospitalization)
  Sender: FDA-Public Use
  Company Number: US-MERCK-0506USA03196

PATIENT
  Age: 95 Year
  Sex: Female
  Weight: 55 kg

DRUGS (29)
  1. VIOXX [Suspect]
     Indication: OSTEOARTHRITIS
     Route: 048
     Dates: start: 19990101, end: 20030101
  2. VIOXX [Suspect]
     Route: 048
     Dates: start: 19990101, end: 20030101
  3. TYLENOL (CAPLET) [Concomitant]
     Indication: PAIN
     Route: 065
     Dates: start: 20010101, end: 20030501
  4. TYLENOL (CAPLET) [Concomitant]
     Indication: ARTHRITIS
     Route: 065
     Dates: start: 20010101, end: 20030501
  5. AMBIEN [Concomitant]
     Route: 065
  6. [COMPOSITION UNSPECIFIED] [Concomitant]
     Route: 065
  7. ZOSTRIX [Concomitant]
     Route: 065
  8. MULTIVITAMIN [Concomitant]
     Route: 065
     Dates: start: 19930101, end: 20030501
  9. COLACE [Concomitant]
     Route: 065
  10. FLEET ENEMA [Concomitant]
     Route: 065
  11. ERYTHROMYCIN [Concomitant]
     Indication: EYE INFECTION
     Route: 065
  12. FOSAMAX [Concomitant]
     Indication: OSTEOPOROSIS
     Route: 065
  13. ROBITUSSIN [Concomitant]
     Route: 065
  14. ANUSOL SUPPOSITORIES/OINTMENT [Concomitant]
     Route: 065
  15. HYDROCORTISONE [Concomitant]
     Route: 065
  16. HYTONE [Concomitant]
     Route: 065
  17. LEVAQUIN [Concomitant]
     Indication: INFECTION
     Route: 065
  18. ZESTRIL [Concomitant]
     Indication: HYPERTENSION
     Route: 065
  19. MAGNESIUM ALUMINUM SILICATE [Concomitant]
     Route: 065
  20. MIRALAX [Concomitant]
     Indication: CONSTIPATION
     Route: 065
  21. CALCIUM (UNSPECIFIED) [Concomitant]
     Route: 065
  22. PROCAINAMIDE HYDROCHLORIDE [Concomitant]
     Indication: HEART RATE IRREGULAR
     Route: 065
  23. PROTONIX [Concomitant]
     Route: 065
  24. [COMPOSITION UNSPECIFIED] [Concomitant]
     Route: 065
  25. GENTAMICIN [Concomitant]
     Indication: EYE INFECTION
     Route: 065
  26. PAXIL [Concomitant]
     Indication: DEMENTIA ALZHEIMER'S TYPE
     Route: 065
     Dates: start: 19930101, end: 20030501
  27. BETOPTIC [Concomitant]
     Route: 065
  28. XANAX [Concomitant]
     Route: 065
     Dates: start: 20020301, end: 20020401
  29. RISPERDAL [Concomitant]
     Indication: DEMENTIA
     Route: 065
     Dates: start: 20020301, end: 20030501

REACTIONS (15)
  - ATRIAL FIBRILLATION [None]
  - CARDIAC FAILURE CONGESTIVE [None]
  - CORONARY ARTERY DISEASE [None]
  - DEMENTIA [None]
  - FALL [None]
  - MENTAL STATUS CHANGES [None]
  - MITRAL VALVE INCOMPETENCE [None]
  - MYOCARDIAL INFARCTION [None]
  - OEDEMA PERIPHERAL [None]
  - PNEUMONIA [None]
  - PULMONARY HYPERTENSION [None]
  - TREMOR [None]
  - TRICUSPID VALVE INCOMPETENCE [None]
  - URINARY TRACT INFECTION [None]
  - VENTRICULAR HYPERTROPHY [None]
